FAERS Safety Report 13491417 (Version 1)
Quarter: 2017Q2

REPORT INFORMATION
  Report Type: Report from Study
  Country: GB (occurrence: GB)
  Receive Date: 20170427
  Receipt Date: 20170427
  Transmission Date: 20170830
  Serious: Yes (Other)
  Sender: FDA-Public Use
  Company Number: GB-TEVA-762436ACC

PATIENT
  Sex: Female

DRUGS (2)
  1. COPAXONE [Suspect]
     Active Substance: GLATIRAMER ACETATE
     Dosage: 40 MILLIGRAM DAILY;
     Route: 058
     Dates: start: 2016, end: 201701
  2. COPAXONE [Suspect]
     Active Substance: GLATIRAMER ACETATE
     Indication: MULTIPLE SCLEROSIS
     Dosage: 20 MILLIGRAM DAILY;
     Route: 058
     Dates: start: 20160602, end: 2016

REACTIONS (4)
  - Inappropriate schedule of drug administration [Unknown]
  - Chest discomfort [Unknown]
  - Therapy change [Unknown]
  - Throat tightness [Unknown]

NARRATIVE: CASE EVENT DATE: 2016
